FAERS Safety Report 10619642 (Version 1)
Quarter: 2014Q4

REPORT INFORMATION
  Report Type: Spontaneous
  Country: US (occurrence: None)
  Receive Date: 20141201
  Receipt Date: 20141201
  Transmission Date: 20150529
  Serious: Yes (Other)
  Sender: FDA-Public Use
  Company Number: None

PATIENT
  Age: 38 Year
  Sex: Female
  Weight: 127.01 kg

DRUGS (1)
  1. DOXYCYCLINE MONOHYDRATE [Suspect]
     Active Substance: DOXYCYCLINE
     Indication: LOWER RESPIRATORY TRACT INFECTION BACTERIAL
     Dosage: 1 PILL
     Route: 048
     Dates: start: 20141129, end: 20141130

REACTIONS (6)
  - Facial pain [None]
  - Dysphagia [None]
  - Rash papular [None]
  - Rash erythematous [None]
  - Swelling face [None]
  - Pain of skin [None]

NARRATIVE: CASE EVENT DATE: 20141129
